FAERS Safety Report 8726925 (Version 2)
Quarter: 2015Q2

REPORT INFORMATION
  Report Type: Report from Study
  Country: US (occurrence: US)
  Receive Date: 20120816
  Receipt Date: 20150626
  Transmission Date: 20150821
  Serious: Yes (Other)
  Sender: FDA-Public Use
  Company Number: US-ROCHE-1100565

PATIENT
  Sex: Male

DRUGS (12)
  1. NITROGLYCERIN. [Concomitant]
     Active Substance: NITROGLYCERIN
     Route: 065
  2. ACTIVASE [Suspect]
     Active Substance: ALTEPLASE
     Indication: ACUTE MYOCARDIAL INFARCTION
     Dosage: OVER 3 HOURS, 60MG  1ST HOUR, 20 MG SECOND HOUR AND 20 MG THIRD HOUR.
     Route: 042
  3. LIDOCAINE. [Concomitant]
     Active Substance: LIDOCAINE
     Route: 040
  4. ACTIVASE [Suspect]
     Active Substance: ALTEPLASE
     Route: 042
  5. ACTIVASE [Suspect]
     Active Substance: ALTEPLASE
     Route: 042
  6. HEPARIN [Concomitant]
     Active Substance: HEPARIN SODIUM
     Dosage: 1000 U/HR
     Route: 065
  7. NITROGLYCERIN. [Concomitant]
     Active Substance: NITROGLYCERIN
     Route: 042
  8. ACTIVASE [Suspect]
     Active Substance: ALTEPLASE
     Dosage: 1ST HOUR
     Route: 042
  9. ACTIVASE [Suspect]
     Active Substance: ALTEPLASE
     Dosage: 2ND HOUR AND 3RD HOUR.
     Route: 042
  10. NITROGLYCERIN. [Concomitant]
     Active Substance: NITROGLYCERIN
     Route: 065
  11. LOPRESSOR [Concomitant]
     Active Substance: METOPROLOL TARTRATE
     Route: 048
  12. ASPIRIN. [Concomitant]
     Active Substance: ASPIRIN
     Route: 048

REACTIONS (5)
  - Agitation [Unknown]
  - Extrasystoles [Unknown]
  - Unevaluable event [Unknown]
  - Chest pain [Unknown]
  - Nausea [Unknown]
